FAERS Safety Report 11701654 (Version 1)
Quarter: 2015Q4

REPORT INFORMATION
  Report Type: Spontaneous
  Country: US (occurrence: US)
  Receive Date: 20151105
  Receipt Date: 20151105
  Transmission Date: 20160304
  Serious: Yes (Hospitalization, Other)
  Sender: FDA-Public Use
  Company Number: PHEH2015US021901

PATIENT
  Age: 78 Year
  Sex: Female

DRUGS (27)
  1. METHOTREXATE [Concomitant]
     Active Substance: METHOTREXATE
     Indication: PRODUCT USED FOR UNKNOWN INDICATION
     Dosage: 1 DF, Q7 DAYS
     Route: 048
  2. AFINITOR [Suspect]
     Active Substance: EVEROLIMUS
     Indication: BREAST CANCER
     Dosage: 1 DF, QD
     Route: 048
     Dates: start: 20141201
  3. NORCO [Concomitant]
     Active Substance: ACETAMINOPHEN\HYDROCODONE BITARTRATE
     Indication: PRODUCT USED FOR UNKNOWN INDICATION
     Dosage: 1 DF, Q4H
     Route: 048
  4. PLAVIX [Concomitant]
     Active Substance: CLOPIDOGREL BISULFATE
     Indication: PRODUCT USED FOR UNKNOWN INDICATION
     Dosage: 1 DF, QD
     Route: 048
  5. ZOMETA [Suspect]
     Active Substance: ZOLEDRONIC ACID
     Indication: METASTASES TO BONE
     Route: 065
  6. CALCIUM [Concomitant]
     Active Substance: CALCIUM
     Indication: PRODUCT USED FOR UNKNOWN INDICATION
     Route: 065
  7. BACITRACIN. [Concomitant]
     Active Substance: BACITRACIN
     Indication: PRODUCT USED FOR UNKNOWN INDICATION
     Dosage: TAKE AS DIRECTED
     Route: 065
  8. LASIX [Concomitant]
     Active Substance: FUROSEMIDE
     Dosage: 1 DF, QD
     Route: 048
  9. LOTRISONE [Concomitant]
     Active Substance: BETAMETHASONE DIPROPIONATE\CLOTRIMAZOLE
     Indication: PRODUCT USED FOR UNKNOWN INDICATION
     Dosage: PRN
     Route: 061
  10. OSCAL D [Concomitant]
     Active Substance: CALCIUM CARBONATE\CHOLECALCIFEROL
     Indication: PRODUCT USED FOR UNKNOWN INDICATION
     Dosage: TAKE AS DIRECTED
     Route: 065
  11. XGEVA [Suspect]
     Active Substance: DENOSUMAB
     Indication: METASTASES TO BONE
     Dosage: 1 DF, QD
     Route: 058
  12. ACIFOL//FOLIC ACID [Concomitant]
     Active Substance: FOLIC ACID
     Indication: PRODUCT USED FOR UNKNOWN INDICATION
     Dosage: 1 DF, QD
     Route: 048
  13. INSULIN [Concomitant]
     Active Substance: INSULIN NOS
     Indication: PRODUCT USED FOR UNKNOWN INDICATION
     Dosage: 20 U AC PM
     Route: 058
  14. AROMASIN [Suspect]
     Active Substance: EXEMESTANE
     Indication: BREAST CANCER
     Dosage: 25 MG, QD
     Route: 048
     Dates: start: 20141201
  15. GABAPENTIN. [Concomitant]
     Active Substance: GABAPENTIN
     Indication: PRODUCT USED FOR UNKNOWN INDICATION
     Dosage: 1 DF, QID
     Route: 048
  16. ALBUTEROL. [Concomitant]
     Active Substance: ALBUTEROL
     Indication: PRODUCT USED FOR UNKNOWN INDICATION
     Dosage: 2 DF, Q6H PRN (90 MCG/ACT)
     Route: 055
  17. POTASSIUM CHLORIDE. [Concomitant]
     Active Substance: POTASSIUM CHLORIDE
     Indication: PRODUCT USED FOR UNKNOWN INDICATION
     Dosage: 1 DF, QD
     Route: 048
  18. INSULIN [Concomitant]
     Active Substance: INSULIN NOS
     Dosage: 35 U, AC AM
     Route: 058
  19. PREDNISONE. [Concomitant]
     Active Substance: PREDNISONE
     Indication: PRODUCT USED FOR UNKNOWN INDICATION
     Dosage: 1 DF, QD
     Route: 048
  20. PREDNISONE. [Concomitant]
     Active Substance: PREDNISONE
     Dosage: UNK
  21. CARVEDILOL. [Concomitant]
     Active Substance: CARVEDILOL
     Indication: PRODUCT USED FOR UNKNOWN INDICATION
     Dosage: 1 DF, BID
     Route: 048
  22. FLUTICASONE W/SALMETEROL [Concomitant]
     Active Substance: FLUTICASONE PROPIONATE\SALMETEROL XINAFOATE
     Indication: PRODUCT USED FOR UNKNOWN INDICATION
     Dosage: TAKE AS DIRECTED
     Route: 065
  23. ADVAIR DISKUS [Concomitant]
     Active Substance: FLUTICASONE PROPIONATE\SALMETEROL XINAFOATE
     Indication: PRODUCT USED FOR UNKNOWN INDICATION
     Dosage: 1 DF, BID (1 PUFF OF 250 TO 50 MCG/DOSE)
     Route: 055
  24. RESTORIL [Concomitant]
     Active Substance: TEMAZEPAM
     Indication: PRODUCT USED FOR UNKNOWN INDICATION
     Dosage: 1 DF, QD AT BEDTIME PRN
     Route: 048
  25. LOTEMAX [Concomitant]
     Active Substance: LOTEPREDNOL ETABONATE
     Indication: PRODUCT USED FOR UNKNOWN INDICATION
     Dosage: TAKE AS DIRECTED
     Route: 065
  26. MULTIVITAMINS [Concomitant]
     Active Substance: VITAMINS
     Indication: PRODUCT USED FOR UNKNOWN INDICATION
     Dosage: 1 DF, QD
     Route: 048
  27. VITAMIN B3 [Concomitant]
     Active Substance: NIACIN
     Indication: PRODUCT USED FOR UNKNOWN INDICATION
     Dosage: TAKE AS DIRECTED
     Route: 065

REACTIONS (35)
  - Skin ulcer [Not Recovered/Not Resolved]
  - Venous ulcer pain [Recovered/Resolved]
  - Gastric disorder [Unknown]
  - Pulmonary mass [Unknown]
  - Gastritis [Unknown]
  - Hypertension [Unknown]
  - Back pain [Unknown]
  - Peripheral arterial occlusive disease [Unknown]
  - Rheumatoid arthritis [Unknown]
  - Colon adenoma [Unknown]
  - Pulmonary granuloma [Unknown]
  - Pelvic fluid collection [Unknown]
  - Hypokinesia [Unknown]
  - Ischaemia [Unknown]
  - Localised intraabdominal fluid collection [Unknown]
  - Chronic sinusitis [Unknown]
  - Fatigue [Not Recovered/Not Resolved]
  - Haemorrhoids [Unknown]
  - Duodenal polyp [Unknown]
  - Renal impairment [Not Recovered/Not Resolved]
  - Rheumatoid nodule [Unknown]
  - Bronchial hyperreactivity [Unknown]
  - Intervertebral disc degeneration [Unknown]
  - Atelectasis [Unknown]
  - Osteosclerosis [Unknown]
  - Dysphagia [Unknown]
  - Arthralgia [Unknown]
  - Gastric ulcer [Unknown]
  - Gangrene [Not Recovered/Not Resolved]
  - Pulmonary fibrosis [Unknown]
  - Lymphangiectasia intestinal [Unknown]
  - Rectal ulcer [Unknown]
  - Lumbar radiculopathy [Unknown]
  - Varicose ulceration [Not Recovered/Not Resolved]
  - Peripheral venous disease [Unknown]

NARRATIVE: CASE EVENT DATE: 20141208
